FAERS Safety Report 21367039 (Version 2)
Quarter: 2022Q4

REPORT INFORMATION
  Report Type: Spontaneous
  Country: US (occurrence: US)
  Receive Date: 20220923
  Receipt Date: 20221216
  Transmission Date: 20230112
  Serious: No
  Sender: FDA-Public Use
  Company Number: US-SA-SAC20220915000275

PATIENT
  Age: 24 Year
  Sex: Female

DRUGS (1)
  1. DUPIXENT [Suspect]
     Active Substance: DUPILUMAB
     Dosage: 300 MG, OTHER
     Route: 058

REACTIONS (3)
  - Injection site rash [Recovered/Resolved]
  - Injection site swelling [Unknown]
  - Injection site erythema [Unknown]
